FAERS Safety Report 7286900-6 (Version None)
Quarter: 2011Q1

REPORT INFORMATION
  Report Type: 
  Country: None (occurrence: None)
  Receive Date: 20110211
  Receipt Date: 20110201
  Transmission Date: 20110831
  Serious: Yes (Hospitalization)
  Sender: FDA-Public Use
  Company Number: US-BIOGENIDEC-2011BI003716

PATIENT
  Age: 54 Year
  Sex: Female

DRUGS (1)
  1. TYSABRI [Suspect]
     Indication: MULTIPLE SCLEROSIS
     Route: 042
     Dates: start: 20080602

REACTIONS (5)
  - ROAD TRAFFIC ACCIDENT [None]
  - GAIT DISTURBANCE [None]
  - HEAD INJURY [None]
  - DYSPHAGIA [None]
  - NECK DEFORMITY [None]
